FAERS Safety Report 24727644 (Version 6)
Quarter: 2025Q2

REPORT INFORMATION
  Report Type: Spontaneous
  Country: JP (occurrence: JP)
  Receive Date: 20241212
  Receipt Date: 20250628
  Transmission Date: 20250717
  Serious: Yes (Hospitalization)
  Sender: AMGEN
  Company Number: JP-AMGEN-JPNSP2024240098

PATIENT
  Age: 82 Year
  Sex: Female
  Weight: 51 kg

DRUGS (14)
  1. EVENITY [Suspect]
     Active Substance: ROMOSOZUMAB-AQQG
     Indication: Osteoporosis
     Dosage: 210 MILLIGRAM, QMO
     Route: 058
     Dates: start: 202407, end: 20241028
  2. VITAMIN D [Concomitant]
     Active Substance: VITAMIN D NOS
     Indication: Femur fracture
     Route: 065
  3. FOLIC ACID [Concomitant]
     Active Substance: FOLIC ACID
     Dosage: 4 DOSAGE FORM, BID
     Route: 065
     Dates: start: 202402
  4. POLAPREZINC [Concomitant]
     Active Substance: POLAPREZINC
     Dosage: 2 DOSAGE FORM, BID
     Route: 065
     Dates: start: 202402
  5. CARVEDILOL [Concomitant]
     Active Substance: CARVEDILOL
     Dosage: 2.5 MILLIGRAM, QD
     Route: 065
     Dates: start: 202402
  6. OLMESARTAN [Concomitant]
     Active Substance: OLMESARTAN
     Dosage: 40 MILLIGRAM, QD
     Route: 048
     Dates: start: 202402
  7. ADALAT [Concomitant]
     Active Substance: NIFEDIPINE
     Dosage: 1 DOSAGE FORM, QD
     Route: 065
     Dates: start: 202402
  8. FUROSEMIDE [Concomitant]
     Active Substance: FUROSEMIDE
     Dosage: 3 DOSAGE FORM, BID
     Route: 065
     Dates: start: 202402
  9. ROSUVASTATIN [Concomitant]
     Active Substance: ROSUVASTATIN
     Dosage: 1 DOSAGE FORM, QD
     Route: 065
     Dates: start: 202402
  10. FEBUXOSTAT [Concomitant]
     Active Substance: FEBUXOSTAT
     Dosage: 1 DOSAGE FORM, QD
     Route: 065
     Dates: start: 202402
  11. LANSOPRAZOLE [Concomitant]
     Active Substance: LANSOPRAZOLE
     Dosage: 1 DOSAGE FORM, QD
     Route: 048
     Dates: start: 202402
  12. NIFEDIPINE [Concomitant]
     Active Substance: NIFEDIPINE
     Dosage: 1 DOSAGE FORM, QD
     Route: 065
     Dates: start: 202402
  13. ALFACALCIDOL [Concomitant]
     Active Substance: ALFACALCIDOL
     Dosage: 1 DOSAGE FORM, QD
     Route: 065
     Dates: start: 202402
  14. SENNOSIDES [Concomitant]
     Active Substance: SENNOSIDES
     Dosage: 1 DOSAGE FORM, QD
     Route: 065
     Dates: start: 202402

REACTIONS (3)
  - Chest discomfort [Recovering/Resolving]
  - Pneumonia [Recovering/Resolving]
  - Cholelithiasis [Recovering/Resolving]

NARRATIVE: CASE EVENT DATE: 20240901
